FAERS Safety Report 20761809 (Version 1)
Quarter: 2022Q2

REPORT INFORMATION
  Report Type: Spontaneous
  Country: CA (occurrence: CA)
  Receive Date: 20220428
  Receipt Date: 20220428
  Transmission Date: 20220721
  Serious: Yes (Other)
  Sender: FDA-Public Use
  Company Number: CA-JNJFOC-20220441111

PATIENT
  Sex: Male

DRUGS (1)
  1. VERMOX [Interacting]
     Active Substance: MEBENDAZOLE
     Indication: Enterobiasis
     Route: 048

REACTIONS (6)
  - Panic attack [Recovered/Resolved]
  - Feeling abnormal [Recovered/Resolved]
  - Hot flush [Recovered/Resolved]
  - Psychomotor hyperactivity [Unknown]
  - Drug interaction [Unknown]
  - Drug hypersensitivity [Unknown]
